FAERS Safety Report 9338209 (Version 2)
Quarter: 2013Q3

REPORT INFORMATION
  Report Type: Spontaneous
  Country: AU (occurrence: AU)
  Receive Date: 20130610
  Receipt Date: 20130705
  Transmission Date: 20140515
  Serious: Yes (Death, Other)
  Sender: FDA-Public Use
  Company Number: AU-B.I. PHARMACEUTICALS,INC./RIDGEFIELD-2013-AU-00707AU

PATIENT
  Age: 82 Year
  Sex: Male

DRUGS (3)
  1. PRADAXA [Suspect]
     Indication: CEREBROVASCULAR ACCIDENT PROPHYLAXIS
     Dates: start: 20110715, end: 20130519
  2. PRADAXA [Suspect]
     Indication: ATRIAL FIBRILLATION
  3. MANY MEDICATIONS [Concomitant]

REACTIONS (2)
  - Sudden death [Fatal]
  - Myocardial infarction [Unknown]
